FAERS Safety Report 14161531 (Version 2)
Quarter: 2017Q4

REPORT INFORMATION
  Report Type: Spontaneous
  Country: JP (occurrence: JP)
  Receive Date: 20171106
  Receipt Date: 20171109
  Transmission Date: 20180321
  Serious: Yes (Death, Hospitalization)
  Sender: FDA-Public Use
  Company Number: PHJP2017JP031705

PATIENT
  Age: 76 Year
  Sex: Male

DRUGS (9)
  1. REGITIN INJECTION 10MG [Suspect]
     Active Substance: PHENTOLAMINE
     Dosage: 500 MG, UNK
     Route: 041
  2. FENTANYL. [Concomitant]
     Active Substance: FENTANYL
     Indication: PRODUCT USED FOR UNKNOWN INDICATION
     Dosage: UNK
     Route: 065
     Dates: start: 20171020
  3. REGITIN INJECTION 10MG [Suspect]
     Active Substance: PHENTOLAMINE
     Dosage: 10 MG, QH
     Route: 041
  4. REGITIN INJECTION 10MG [Suspect]
     Active Substance: PHENTOLAMINE
     Dosage: 6 MG, QH
     Route: 041
     Dates: end: 20170822
  5. REGITIN INJECTION 10MG [Suspect]
     Active Substance: PHENTOLAMINE
     Dosage: 50 MG, UNK
     Route: 041
     Dates: start: 20171005
  6. GLUCOSE [Concomitant]
     Active Substance: DEXTROSE
     Indication: PRODUCT USED FOR UNKNOWN INDICATION
     Route: 041
  7. SANDOSTATIN [Suspect]
     Active Substance: OCTREOTIDE ACETATE
     Indication: GASTROINTESTINAL DISORDER
     Dosage: 10 UG, QH
     Route: 058
     Dates: start: 20171020
  8. REGITIN INJECTION 10MG [Suspect]
     Active Substance: PHENTOLAMINE
     Dosage: 16 MG, QH
     Route: 041
  9. REGITIN INJECTION 10MG [Suspect]
     Active Substance: PHENTOLAMINE
     Indication: PHAEOCHROMOCYTOMA MALIGNANT
     Dosage: 2 MG, QH
     Route: 041
     Dates: start: 20170808

REACTIONS (5)
  - Infusion site erythema [Unknown]
  - Vasculitis [Recovering/Resolving]
  - Nausea [Unknown]
  - Infusion site extravasation [Unknown]
  - Malignant neoplasm progression [Fatal]

NARRATIVE: CASE EVENT DATE: 20170822
